FAERS Safety Report 19024697 (Version 1)
Quarter: 2021Q1

REPORT INFORMATION
  Report Type: Other
  Country: CN (occurrence: CN)
  Receive Date: 20210318
  Receipt Date: 20210318
  Transmission Date: 20210420
  Serious: Yes (Hospitalization, Other)
  Sender: FDA-Public Use
  Company Number: CN-APPCO PHARMA LLC-2108138

PATIENT
  Age: 45 Year
  Sex: Female

DRUGS (4)
  1. LEVOFLOXACIN. [Concomitant]
     Active Substance: LEVOFLOXACIN
     Route: 065
  2. IMIPENEM/CILASTAT [Concomitant]
     Route: 065
  3. CLINDAMYCIN PALMITATE HYDROCHLORIDE. [Suspect]
     Active Substance: CLINDAMYCIN PALMITATE HYDROCHLORIDE
     Indication: POST PROCEDURAL INFECTION
     Route: 065
  4. LINEZOLID. [Concomitant]
     Active Substance: LINEZOLID
     Route: 065

REACTIONS (2)
  - Toxic shock syndrome streptococcal [Recovered/Resolved]
  - Drug resistance [Unknown]
